FAERS Safety Report 5105945-5 (Version None)
Quarter: 2006Q3

REPORT INFORMATION
  Report Type: 
  Country: None (occurrence: None)
  Receive Date: 20060912
  Receipt Date: 20060828
  Transmission Date: 20061208
  Serious: Yes (Hospitalization)
  Sender: FDA-Public Use
  Company Number: US200608006378

PATIENT
  Sex: Female

DRUGS (1)
  1. HUMULIN U [Suspect]
     Indication: DIABETES MELLITUS
     Dates: start: 20020101

REACTIONS (1)
  - SARCOMA UTERUS [None]
